FAERS Safety Report 11145032 (Version 6)
Quarter: 2015Q4

REPORT INFORMATION
  Report Type: Spontaneous
  Country: US (occurrence: US)
  Receive Date: 20150526
  Receipt Date: 20151103
  Transmission Date: 20160304
  Serious: Yes (Hospitalization)
  Sender: FDA-Public Use
  Company Number: US-BEH-2015051210

PATIENT
  Age: 55 Year
  Sex: Male
  Weight: 83 kg

DRUGS (5)
  1. ALBURX [Suspect]
     Active Substance: ALBUMIN (HUMAN)
     Indication: NEUROPATHY PERIPHERAL
     Dosage: VIA RIGHT THIGH GRAFT; 125 ML/MIN.; TOTAL 2822 ML (6 BOTTLES)
     Route: 042
     Dates: start: 20150513, end: 20150513
  2. ALBURX [Suspect]
     Active Substance: ALBUMIN (HUMAN)
     Indication: CHRONIC INFLAMMATORY DEMYELINATING POLYRADICULONEUROPATHY
     Route: 042
     Dates: start: 20150522, end: 20150522
  3. ALBURX [Suspect]
     Active Substance: ALBUMIN (HUMAN)
     Indication: FLUID REPLACEMENT
     Route: 042
     Dates: start: 20150507, end: 20150507
  4. PREDNISONE. [Concomitant]
     Active Substance: PREDNISONE
  5. ALBURX [Suspect]
     Active Substance: ALBUMIN (HUMAN)
     Indication: PLASMAPHERESIS
     Dosage: VIA RIGHT THIGH GRAFT; 125 ML/MIN.; TOTAL 2822 ML (6 BOTTLES)
     Route: 042
     Dates: start: 20150513, end: 20150513

REACTIONS (8)
  - Vomiting [Recovered/Resolved]
  - Hypoaesthesia [Unknown]
  - Asthenia [Unknown]
  - Chills [Recovered/Resolved]
  - Pyrexia [Recovered/Resolved]
  - Nausea [Recovered/Resolved]
  - Abdominal pain [Unknown]
  - Diarrhoea [Unknown]

NARRATIVE: CASE EVENT DATE: 20150513
